FAERS Safety Report 15166036 (Version 1)
Quarter: 2018Q3

REPORT INFORMATION
  Report Type: Spontaneous
  Country: CA (occurrence: CA)
  Receive Date: 20180719
  Receipt Date: 20180719
  Transmission Date: 20181010
  Serious: Yes (Other)
  Sender: FDA-Public Use
  Company Number: CA-CELLTRION INC.-2018CA019710

PATIENT

DRUGS (4)
  1. INFLECTRA [Suspect]
     Active Substance: INFLIXIMAB-DYYB
     Dosage: 450 MG, UNK
     Route: 042
     Dates: start: 20180509
  2. INFLECTRA [Suspect]
     Active Substance: INFLIXIMAB-DYYB
     Indication: COLITIS ULCERATIVE
     Dosage: 10MG/KG EVERY 0, 2, 6 WEEKS, THEN EVERY 8 WEEKS, CYCLIC
     Route: 042
     Dates: start: 20180331
  3. INFLECTRA [Suspect]
     Active Substance: INFLIXIMAB-DYYB
     Dosage: 10MG/KG  EVERY 0, 2, 6 WEEKS, THEN EVERY 8 WEEKS, CYCLIC
     Route: 042
     Dates: start: 20180409
  4. INFLECTRA [Suspect]
     Active Substance: INFLIXIMAB-DYYB
     Dosage: 5 MG/KG, CYCLIC (EVERY 0, 2 6 WEEKS, THEN EVERT 8 WEEKS
     Route: 042
     Dates: start: 20180509

REACTIONS (5)
  - Haematochezia [Not Recovered/Not Resolved]
  - Product use issue [Unknown]
  - Drug ineffective [Unknown]
  - Haemorrhoidal haemorrhage [Not Recovered/Not Resolved]
  - Incorrect dose administered [Unknown]

NARRATIVE: CASE EVENT DATE: 20180331
